FAERS Safety Report 19760188 (Version 3)
Quarter: 2024Q3

REPORT INFORMATION
  Report Type: Spontaneous
  Country: US (occurrence: US)
  Receive Date: 20210830
  Receipt Date: 20240716
  Transmission Date: 20241017
  Serious: No
  Sender: TEVA
  Company Number: US-TEVA-2021-US-1944039

PATIENT
  Age: 47 Year
  Sex: Female
  Weight: 83.46 kg

DRUGS (12)
  1. AJOVY [Suspect]
     Active Substance: FREMANEZUMAB-VFRM
     Indication: Migraine
     Dosage: DOSAGE TEXT: AT A DOSE OF 1 INJECTION MONTHLY INTO THE LEG
     Route: 065
     Dates: start: 202104
  2. AJOVY [Suspect]
     Active Substance: FREMANEZUMAB-VFRM
     Dosage: DOSAGE TEXT: AT 08:00 IN THE OTHER LEG
     Route: 065
     Dates: start: 20210713
  3. AJOVY [Suspect]
     Active Substance: FREMANEZUMAB-VFRM
     Dosage: DOSAGE TEXT: AT 16:45
     Route: 065
     Dates: start: 20210812
  4. ZOLOFT [Concomitant]
     Active Substance: SERTRALINE HYDROCHLORIDE
  5. ALPRAZOLAM [Concomitant]
     Active Substance: ALPRAZOLAM
  6. LYRICA [Concomitant]
     Active Substance: PREGABALIN
  7. DILAUDID [Concomitant]
     Active Substance: HYDROMORPHONE HYDROCHLORIDE
  8. FENTANYL TRANSDERMAL SYSTEM [Concomitant]
     Active Substance: FENTANYL
     Route: 062
  9. SOMA [Concomitant]
     Active Substance: CARISOPRODOL
  10. INDOMETHACIN [Concomitant]
     Active Substance: INDOMETHACIN
  11. LEVOTHYROXINE [Concomitant]
     Active Substance: LEVOTHYROXINE\LEVOTHYROXINE SODIUM
  12. CYCLOBENZAPRINE [Concomitant]
     Active Substance: CYCLOBENZAPRINE

REACTIONS (5)
  - Injection site erythema [Unknown]
  - Injection site reaction [Unknown]
  - Injection site pain [Unknown]
  - Injection site pruritus [Unknown]
  - Injection site swelling [Unknown]

NARRATIVE: CASE EVENT DATE: 20210101
